FAERS Safety Report 5781271-6 (Version None)
Quarter: 2008Q2

REPORT INFORMATION
  Report Type: 
  Country: None (occurrence: None)
  Receive Date: 20080623
  Receipt Date: 20080611
  Transmission Date: 20081010
  Serious: Yes (Other)
  Sender: FDA-Public Use
  Company Number: US-JNJFOC-20080604199

PATIENT
  Sex: Male
  Weight: 80.74 kg

DRUGS (1)
  1. REMICADE [Suspect]
     Indication: DRUG USE FOR UNKNOWN INDICATION
     Dosage: DOSE: 5 VIALS
     Route: 042

REACTIONS (2)
  - DIARRHOEA [None]
  - WEIGHT DECREASED [None]
